FAERS Safety Report 7482579-9 (Version None)
Quarter: 2011Q2

REPORT INFORMATION
  Report Type: 
  Country: None (occurrence: None)
  Receive Date: 20110516
  Receipt Date: 20110512
  Transmission Date: 20111010
  Serious: Yes (Life-Threatening, Other)
  Sender: FDA-Public Use
  Company Number: GB-ABBOTT-11P-167-0725135-00

PATIENT
  Age: 74 Year
  Sex: Female

DRUGS (3)
  1. VERAPAMIL [Concomitant]
     Indication: PRODUCT USED FOR UNKNOWN INDICATION
  2. ERYTHROMYCIN [Suspect]
     Indication: CHRONIC OBSTRUCTIVE PULMONARY DISEASE
     Route: 048
     Dates: start: 20110228
  3. AMIAS [Concomitant]
     Indication: PRODUCT USED FOR UNKNOWN INDICATION

REACTIONS (9)
  - LOSS OF CONSCIOUSNESS [None]
  - HYPOTENSION [None]
  - FATIGUE [None]
  - FALL [None]
  - DRUG INTERACTION [None]
  - EYE MOVEMENT DISORDER [None]
  - WRIST FRACTURE [None]
  - MALAISE [None]
  - DIZZINESS [None]
